FAERS Safety Report 9354049 (Version 2)
Quarter: 2013Q2

REPORT INFORMATION
  Report Type: Spontaneous
  Country: US (occurrence: US)
  Receive Date: 20130618
  Receipt Date: 20130621
  Transmission Date: 20140414
  Serious: No
  Sender: FDA-Public Use
  Company Number: US-009507513-1306USA006421

PATIENT
  Age: 49 Year
  Sex: Female

DRUGS (2)
  1. SAPHRIS [Suspect]
     Dosage: 10 MG TABLET ONCE AT BEDTIME
     Route: 060
     Dates: start: 201306
  2. SAPHRIS [Suspect]
     Dosage: UNK
     Route: 048
     Dates: end: 2013

REACTIONS (4)
  - Aversion [Unknown]
  - Nausea [Unknown]
  - Product taste abnormal [Unknown]
  - Inappropriate schedule of drug administration [Unknown]
